FAERS Safety Report 4594240-9 (Version None)
Quarter: 2005Q1

REPORT INFORMATION
  Report Type: 
  Country: None (occurrence: None)
  Receive Date: 20050223
  Receipt Date: 20050210
  Transmission Date: 20050727
  Serious: Yes (Hospitalization)
  Sender: FDA-Public Use
  Company Number: WAES 0502USA01177

PATIENT
  Sex: 0

DRUGS (2)
  1. TIMOPTIC [Suspect]
     Dosage: OPHT
     Route: 047
  2. XALATAN [Concomitant]

REACTIONS (3)
  - DECREASED ACTIVITY [None]
  - DISCOMFORT [None]
  - SUPRAVENTRICULAR TACHYCARDIA [None]
